FAERS Safety Report 8955952 (Version 1)
Quarter: 2012Q4

REPORT INFORMATION
  Report Type: 
  Country: IT (occurrence: IT)
  Receive Date: 20121210
  Receipt Date: 20121210
  Transmission Date: 20130627
  Serious: Yes (Hospitalization, Disabling)
  Sender: FDA-Public Use
  Company Number: IT-BAXTER-2012BAX025797

PATIENT
  Age: 60 Year
  Sex: Female

DRUGS (2)
  1. ENDOXAN BAXTER [Suspect]
     Indication: BREAST CANCER
     Route: 042
     Dates: start: 20120320, end: 20120523
  2. EPIRUBICIN [Concomitant]
     Indication: BREAST CANCER
     Route: 042
     Dates: start: 20120320, end: 20120523

REACTIONS (1)
  - Lung consolidation [Not Recovered/Not Resolved]
